FAERS Safety Report 6278566-9 (Version None)
Quarter: 2009Q3

REPORT INFORMATION
  Report Type: 
  Country: None (occurrence: None)
  Receive Date: 20090722
  Receipt Date: 20080930
  Transmission Date: 20100115
  Serious: No
  Sender: FDA-Public Use
  Company Number: US-BAUSCH-2008BL004217

PATIENT
  Age: 37 Year
  Sex: Male

DRUGS (4)
  1. OPCON-A [Suspect]
     Indication: OCULAR HYPERAEMIA
     Route: 047
     Dates: start: 20080930, end: 20080930
  2. FISH OIL [Concomitant]
  3. MULTI-VITAMINS [Concomitant]
  4. TRIAMTERENE [Concomitant]
     Indication: HYPERTENSION

REACTIONS (1)
  - MYDRIASIS [None]
